APPROVED DRUG PRODUCT: OLANZAPINE
Active Ingredient: OLANZAPINE
Strength: 5MG
Dosage Form/Route: TABLET;ORAL
Application: A203333 | Product #002 | TE Code: AB
Applicant: CHARTWELL MOLECULAR HOLDINGS LLC
Approved: Mar 15, 2016 | RLD: No | RS: No | Type: RX